FAERS Safety Report 5066725-2 (Version None)
Quarter: 2006Q3

REPORT INFORMATION
  Report Type: 
  Country: None (occurrence: None)
  Receive Date: 20060710
  Receipt Date: 20060424
  Transmission Date: 20061208
  Serious: Yes (Other)
  Sender: FDA-Public Use
  Company Number: PHEH2006US03689

PATIENT
  Age: 34 Year
  Sex: Female

DRUGS (2)
  1. GLEEVEC [Suspect]
     Indication: CHRONIC MYELOID LEUKAEMIA (IN REMISSION)
     Dosage: 300 MG, QD, ORAL; 400 MG, QD, ORAL
     Route: 048
     Dates: start: 20010701
  2. GLEEVEC [Suspect]
     Indication: CHRONIC MYELOID LEUKAEMIA (IN REMISSION)
     Dosage: 300 MG, QD, ORAL; 400 MG, QD, ORAL
     Route: 048
     Dates: start: 20060314

REACTIONS (3)
  - LEUKAEMIA RECURRENT [None]
  - MALIGNANT NEOPLASM PROGRESSION [None]
  - MUSCLE SPASMS [None]
